FAERS Safety Report 23205343 (Version 6)
Quarter: 2024Q1

REPORT INFORMATION
  Report Type: Spontaneous
  Country: US (occurrence: US)
  Receive Date: 20231120
  Receipt Date: 20240202
  Transmission Date: 20240410
  Serious: Yes (Other)
  Sender: FDA-Public Use
  Company Number: US-PFIZER INC-PV202300188919

PATIENT
  Age: 50 Year
  Sex: Female

DRUGS (3)
  1. IBRANCE [Suspect]
     Active Substance: PALBOCICLIB
     Dosage: 125 MG
     Dates: start: 20231109
  2. FULVESTRANT [Concomitant]
     Active Substance: FULVESTRANT
     Dosage: UNK
  3. LUPRON DEPOT [Concomitant]
     Active Substance: LEUPROLIDE ACETATE
     Dosage: UNK

REACTIONS (17)
  - Postmenopausal haemorrhage [Unknown]
  - Faeces soft [Unknown]
  - Feeling abnormal [Unknown]
  - Ageusia [Unknown]
  - Lip dry [Unknown]
  - Oral mucosal blistering [Unknown]
  - Tongue blistering [Recovered/Resolved]
  - Stomatitis [Recovered/Resolved]
  - Somnolence [Unknown]
  - Fatigue [Unknown]
  - Abdominal discomfort [Unknown]
  - Paraesthesia oral [Unknown]
  - Feeling hot [Unknown]
  - Nasal congestion [Not Recovered/Not Resolved]
  - Viral infection [Recovered/Resolved]
  - Tumour marker increased [Recovered/Resolved]
  - White blood cell count decreased [Unknown]

NARRATIVE: CASE EVENT DATE: 20231101
